FAERS Safety Report 8256251-1 (Version None)
Quarter: 2012Q2

REPORT INFORMATION
  Report Type: 
  Country: None (occurrence: None)
  Receive Date: 20120403
  Receipt Date: 20120327
  Transmission Date: 20120825
  Serious: Yes (Other)
  Sender: FDA-Public Use
  Company Number: US-ASTRAZENECA-2011SE49112

PATIENT
  Age: 72 Year
  Sex: Female

DRUGS (3)
  1. NEXIUM [Suspect]
     Route: 048
  2. SYMBICORT [Suspect]
     Route: 055
  3. ARIMIDEX [Suspect]
     Route: 048

REACTIONS (3)
  - CHRONIC OBSTRUCTIVE PULMONARY DISEASE [None]
  - BREAST CANCER [None]
  - CANDIDIASIS [None]
